FAERS Safety Report 19034227 (Version 1)
Quarter: 2021Q1

REPORT INFORMATION
  Report Type: Spontaneous
  Country: IT (occurrence: IT)
  Receive Date: 20210320
  Receipt Date: 20210320
  Transmission Date: 20210420
  Serious: Yes (Life-Threatening, Hospitalization, Disabling, Other)
  Sender: FDA-Public Use
  Company Number: IT-LUPIN PHARMACEUTICALS INC.-2021-03538

PATIENT
  Age: 55 Year
  Sex: Male

DRUGS (14)
  1. METHYLPREDNISOLONE. [Suspect]
     Active Substance: METHYLPREDNISOLONE
     Indication: IMMUNOSUPPRESSANT DRUG THERAPY
  2. RITUXIMAB. [Suspect]
     Active Substance: RITUXIMAB
     Indication: IMMUNOSUPPRESSANT DRUG THERAPY
  3. IMMUNOGLOBULINS NOS [Suspect]
     Active Substance: IMMUNE GLOBULIN NOS
     Indication: IMMUNOSUPPRESSANT DRUG THERAPY
     Dosage: A CYCLE OF IVIG 400 MG/KG
     Route: 065
  4. RITUXIMAB. [Suspect]
     Active Substance: RITUXIMAB
     Indication: DERMATOMYOSITIS
     Dosage: 1 GRAM, (ALTERNATE CYCLES)
     Route: 065
  5. BEGELOMAB. [Concomitant]
     Active Substance: BEGELOMAB
     Dosage: MAINTENANCE THERAPY WITH BEGELOMAB AT THE DOSAGE OF 4 MG/M 2 EVERY OTHER DAY FOR ADDITIONAL ELEVEN I
     Route: 065
  6. BEGELOMAB. [Concomitant]
     Active Substance: BEGELOMAB
     Indication: DERMATOMYOSITIS
     Dosage: DOSAGE OF 4 MG/M 2 DAILY FOR 5 CONSECUTIVE DAYS; 3 CYCLES OF 5?DAYS
     Route: 065
  7. TACROLIMUS. [Suspect]
     Active Substance: TACROLIMUS
     Indication: IMMUNOSUPPRESSANT DRUG THERAPY
  8. IMMUNOGLOBULINS NOS [Suspect]
     Active Substance: IMMUNE GLOBULIN NOS
     Indication: DERMATOMYOSITIS
     Dosage: 2 G/KG OVER 5 CONSECUTIVE DAYS
     Route: 065
  9. MYCOPHENOLATE MOFETIL. [Suspect]
     Active Substance: MYCOPHENOLATE MOFETIL
     Indication: IMMUNOSUPPRESSANT DRUG THERAPY
     Dosage: WHICH WAS INCREASED PROGRESSIVELY UP TO 3 G DAILY OVER 3 WEEKS.
     Route: 065
  10. METHYLPREDNISOLONE. [Suspect]
     Active Substance: METHYLPREDNISOLONE
     Indication: DERMATOMYOSITIS
     Dosage: 0.7 MILLIGRAM/KILOGRAM, QD (0.7 MG/KG DAILY TO BE SLOWLY TAPERED)
     Route: 048
  11. MYCOPHENOLATE MOFETIL. [Suspect]
     Active Substance: MYCOPHENOLATE MOFETIL
     Indication: DERMATOMYOSITIS
     Dosage: 1 GRAM, QD
     Route: 065
  12. TACROLIMUS. [Suspect]
     Active Substance: TACROLIMUS
     Indication: DERMATOMYOSITIS
     Dosage: 1 GRAM
     Route: 065
  13. PREDNISONE. [Suspect]
     Active Substance: PREDNISONE
     Indication: DERMATOMYOSITIS
     Dosage: 10 MILLIGRAM
     Route: 048
  14. PREDNISONE. [Suspect]
     Active Substance: PREDNISONE
     Indication: IMMUNOSUPPRESSANT DRUG THERAPY

REACTIONS (9)
  - Treatment failure [Unknown]
  - Ileal perforation [Recovered/Resolved]
  - Dermatomyositis [Recovering/Resolving]
  - Fungal peritonitis [Unknown]
  - Candida infection [Unknown]
  - Condition aggravated [Recovering/Resolving]
  - Vasculitis gastrointestinal [Recovered/Resolved]
  - Enterococcal sepsis [Recovered/Resolved]
  - Jejunal perforation [Recovered/Resolved]
